FAERS Safety Report 19873888 (Version 2)
Quarter: 2022Q1

REPORT INFORMATION
  Report Type: Report from Study
  Country: US (occurrence: US)
  Receive Date: 20210922
  Receipt Date: 20220115
  Transmission Date: 20220424
  Serious: Yes (Other)
  Sender: FDA-Public Use
  Company Number: US-REGENERON PHARMACEUTICALS, INC.-2021-80183

PATIENT
  Age: 39 Year
  Sex: Female

DRUGS (2)
  1. CASIRIVIMAB\IMDEVIMAB [Suspect]
     Active Substance: CASIRIVIMAB\IMDEVIMAB
     Indication: COVID-19
     Dosage: UNK
     Route: 042
     Dates: start: 20210820, end: 20210820
  2. STELARA [Concomitant]
     Active Substance: USTEKINUMAB
     Indication: Product used for unknown indication
     Dosage: UNK
     Route: 065

REACTIONS (7)
  - Angioedema [Unknown]
  - Swelling face [Recovering/Resolving]
  - Swelling of eyelid [Recovering/Resolving]
  - Lip swelling [Recovering/Resolving]
  - Erythema [Recovering/Resolving]
  - Pruritus [Recovering/Resolving]
  - Infusion related hypersensitivity reaction [Recovering/Resolving]

NARRATIVE: CASE EVENT DATE: 20210825
